FAERS Safety Report 10668281 (Version 1)
Quarter: 2014Q4

REPORT INFORMATION
  Report Type: Spontaneous
  Country: US (occurrence: US)
  Receive Date: 20141222
  Receipt Date: 20141222
  Transmission Date: 20150529
  Serious: Yes (Other)
  Sender: FDA-Public Use
  Company Number: US-ACTAVIS-2014-26977

PATIENT
  Age: 45 Year
  Sex: Female

DRUGS (3)
  1. PROGESTERONE (IN SESAME OIL) (WATSON LABORATORIES) [Suspect]
     Active Substance: PROGESTERONE
     Indication: HORMONE LEVEL ABNORMAL
     Dosage: 100 MG, DAILY
     Route: 030
     Dates: start: 20141030, end: 20141112
  2. ESTRADIOL. [Concomitant]
     Active Substance: ESTRADIOL
     Indication: BLOOD OESTROGEN DECREASED
     Dosage: UNK
     Route: 048
     Dates: end: 20141202
  3. MINIVELLE [Concomitant]
     Active Substance: ESTRADIOL
     Indication: HORMONE LEVEL ABNORMAL
     Dosage: UNK
     Route: 062
     Dates: end: 20141202

REACTIONS (3)
  - Abortion spontaneous [Not Recovered/Not Resolved]
  - Drug ineffective [Not Recovered/Not Resolved]
  - Drug level below therapeutic [Unknown]

NARRATIVE: CASE EVENT DATE: 20141112
